FAERS Safety Report 6508345-6 (Version None)
Quarter: 2009Q4

REPORT INFORMATION
  Report Type: 
  Country: None (occurrence: None)
  Receive Date: 20091221
  Receipt Date: 20090915
  Transmission Date: 20100525
  Serious: No
  Sender: FDA-Public Use
  Company Number: US-ASTRAZENECA-2008UW17024

PATIENT
  Age: 967 Month
  Sex: Male
  Weight: 72.6 kg

DRUGS (9)
  1. CRESTOR [Suspect]
     Indication: BLOOD CHOLESTEROL INCREASED
     Route: 048
     Dates: start: 20070101, end: 20090101
  2. CRESTOR [Suspect]
     Route: 048
     Dates: start: 20090101
  3. PLAVIX [Concomitant]
  4. ATENOLOL [Concomitant]
     Route: 048
  5. ASPIRIN [Concomitant]
  6. VITAMIN [Concomitant]
  7. ZETIA [Concomitant]
  8. POXAZOSIN [Concomitant]
  9. VESICARA [Concomitant]

REACTIONS (5)
  - BLOOD TRIGLYCERIDES INCREASED [None]
  - FEELING HOT [None]
  - MUSCULOSKELETAL PAIN [None]
  - MYALGIA [None]
  - PAIN IN EXTREMITY [None]
